FAERS Safety Report 16974166 (Version 1)
Quarter: 2019Q4

REPORT INFORMATION
  Report Type: Spontaneous
  Country: LT (occurrence: LT)
  Receive Date: 20191030
  Receipt Date: 20191030
  Transmission Date: 20200122
  Serious: Yes (Life-Threatening, Hospitalization)
  Sender: FDA-Public Use
  Company Number: LT-TEVA-2019-LT-1129801

PATIENT
  Age: 46 Year
  Sex: Female
  Weight: 68 kg

DRUGS (3)
  1. OLANZAPINE. [Suspect]
     Active Substance: OLANZAPINE
     Indication: COMPLETED SUICIDE
     Route: 048
     Dates: start: 20190914, end: 20190914
  2. QUETIAPINE. [Concomitant]
     Active Substance: QUETIAPINE
     Indication: COMPLETED SUICIDE
     Route: 048
     Dates: start: 20190914, end: 20190914
  3. OLANZAPINE. [Suspect]
     Active Substance: OLANZAPINE
     Indication: OVERDOSE

REACTIONS (2)
  - Coma [Recovering/Resolving]
  - Toxicity to various agents [Recovering/Resolving]

NARRATIVE: CASE EVENT DATE: 20190914
